FAERS Safety Report 7350179-7 (Version None)
Quarter: 2011Q1

REPORT INFORMATION
  Report Type: 
  Country: None (occurrence: None)
  Receive Date: 20110314
  Receipt Date: 20110304
  Transmission Date: 20110831
  Serious: Yes (Hospitalization)
  Sender: FDA-Public Use
  Company Number: B0701748A

PATIENT
  Age: 51 Year
  Sex: Male

DRUGS (2)
  1. AVANDIA [Suspect]
     Dosage: 8MG PER DAY
     Route: 048
     Dates: start: 20020502, end: 20071227
  2. AVANDARYL [Suspect]
     Route: 048
     Dates: start: 20060623, end: 20060723

REACTIONS (2)
  - MYOCARDIAL INFARCTION [None]
  - CORONARY ARTERY BYPASS [None]
